FAERS Safety Report 18259384 (Version 1)
Quarter: 2020Q3

REPORT INFORMATION
  Report Type: Spontaneous
  Country: US (occurrence: US)
  Receive Date: 20200911
  Receipt Date: 20200911
  Transmission Date: 20201103
  Serious: Yes (Other)
  Sender: FDA-Public Use
  Company Number: US-BIOMARINAP-US-2020-132102

PATIENT
  Age: 20 Month
  Sex: Female

DRUGS (3)
  1. ZYRTEC [Concomitant]
     Active Substance: CETIRIZINE HYDROCHLORIDE
     Indication: PREMEDICATION
  2. VIMIZIM [Suspect]
     Active Substance: ELOSULFASE ALFA
     Indication: MUCOPOLYSACCHARIDOSIS IV
     Dosage: 25 MILLIGRAM, QW
     Route: 042
  3. TYLENOL 8HR [Concomitant]
     Active Substance: ACETAMINOPHEN
     Indication: PREMEDICATION

REACTIONS (8)
  - Tachycardia [Unknown]
  - Flushing [Unknown]
  - Anaphylactic reaction [Unknown]
  - Crying [Unknown]
  - Hypersensitivity [Unknown]
  - Rash [Unknown]
  - Agitation [Unknown]
  - Cough [Unknown]

NARRATIVE: CASE EVENT DATE: 20200826
